FAERS Safety Report 16226483 (Version 1)
Quarter: 2019Q2

REPORT INFORMATION
  Report Type: Spontaneous
  Country: NO (occurrence: NO)
  Receive Date: 20190423
  Receipt Date: 20190423
  Transmission Date: 20190711
  Serious: Yes (Hospitalization, Disabling)
  Sender: FDA-Public Use
  Company Number: NO-SA-2019SA110993

PATIENT
  Age: 40 Year
  Sex: Female
  Weight: 62 kg

DRUGS (1)
  1. AUBAGIO [Suspect]
     Active Substance: TERIFLUNOMIDE
     Indication: MULTIPLE SCLEROSIS
     Dosage: 1 DF QD
     Route: 048
     Dates: start: 20150801, end: 20160304

REACTIONS (3)
  - Diarrhoea [Recovered/Resolved]
  - Abdominal pain lower [Recovered/Resolved with Sequelae]
  - Fatigue [Recovered/Resolved]

NARRATIVE: CASE EVENT DATE: 20150808
